FAERS Safety Report 24572311 (Version 1)
Quarter: 2024Q4

REPORT INFORMATION
  Report Type: Spontaneous
  Country: US (occurrence: None)
  Receive Date: 20241101
  Receipt Date: 20241101
  Transmission Date: 20250115
  Serious: Yes (Hospitalization)
  Sender: Public
  Company Number: None

PATIENT
  Age: 75 Year
  Sex: Male
  Weight: 90.26 kg

DRUGS (2)
  1. CISPLATIN [Suspect]
     Active Substance: CISPLATIN
     Dates: end: 20240903
  2. DEVICE [Suspect]
     Active Substance: DEVICE

REACTIONS (5)
  - Dehydration [None]
  - Oropharyngeal pain [None]
  - Abdominal abscess [None]
  - Staphylococcal infection [None]
  - Medical device site cellulitis [None]

NARRATIVE: CASE EVENT DATE: 20240909
